FAERS Safety Report 25256613 (Version 1)
Quarter: 2025Q2

REPORT INFORMATION
  Report Type: Spontaneous
  Country: US (occurrence: None)
  Receive Date: 20250430
  Receipt Date: 20250430
  Transmission Date: 20250717
  Serious: Yes (Hospitalization)
  Sender: FDA-CTU
  Company Number: None

PATIENT
  Sex: Female

DRUGS (2)
  1. ADALIMUMAB-FKJP [Suspect]
     Active Substance: ADALIMUMAB-FKJP
     Indication: Rheumatoid arthritis
     Dosage: FREQUENCY : EVERY OTHER WEEK;?
     Route: 058
  2. METHOTREXATE [Suspect]
     Active Substance: METHOTREXATE

REACTIONS (11)
  - Peripheral swelling [None]
  - Arthralgia [None]
  - Pain in extremity [None]
  - Grip strength decreased [None]
  - Fatigue [None]
  - Abdominal pain [None]
  - Palpitations [None]
  - Haematochezia [None]
  - Sinusitis [None]
  - Fibromyalgia [None]
  - Pulmonary thrombosis [None]
